FAERS Safety Report 15464830 (Version 1)
Quarter: 2018Q4

REPORT INFORMATION
  Report Type: Spontaneous
  Country: US (occurrence: US)
  Receive Date: 20181004
  Receipt Date: 20181004
  Transmission Date: 20190204
  Serious: No
  Sender: FDA-Public Use
  Company Number: US-TARO-2017TAR01083

PATIENT
  Sex: Male

DRUGS (1)
  1. LORATADINE SYRUP (LORATADINE ORAL SOLUTION USP) 5MG/5ML [Suspect]
     Active Substance: LORATADINE
     Indication: MULTIPLE ALLERGIES
     Dosage: UNK
     Dates: start: 201711, end: 201711

REACTIONS (3)
  - Expired product administered [Recovered/Resolved]
  - Product substitution issue [Recovered/Resolved]
  - Drug ineffective [Recovered/Resolved]

NARRATIVE: CASE EVENT DATE: 201711
